FAERS Safety Report 9821982 (Version 1)
Quarter: 2014Q1

REPORT INFORMATION
  Report Type: Spontaneous
  Country: FR (occurrence: None)
  Receive Date: 20140115
  Receipt Date: 20140115
  Transmission Date: 20141002
  Serious: Yes (Other)
  Sender: FDA-Public Use
  Company Number: FR-ZYDUS-002463

PATIENT
  Age: 21 Year
  Sex: Male

DRUGS (2)
  1. RISPERIDONE [Suspect]
     Dosage: 1.00-MG-1.0DAYS
  2. ARIPIPRAZOLE (ARIPIPRAZOLE) [Suspect]
     Dosage: 10.00-MG-2.00 TIMES PER-1.0DAYS

REACTIONS (1)
  - Pulmonary embolism [None]
